FAERS Safety Report 7153115-1 (Version None)
Quarter: 2010Q4

REPORT INFORMATION
  Report Type: 
  Country: None (occurrence: None)
  Receive Date: 20101213
  Receipt Date: 20101209
  Transmission Date: 20110411
  Serious: Yes (Death)
  Sender: FDA-Public Use
  Company Number: PHHY2010JP83706

PATIENT
  Age: 63 Year
  Sex: Male

DRUGS (4)
  1. RASILEZ [Suspect]
     Indication: HYPERTENSION
     Route: 048
  2. OLMETEC [Concomitant]
     Route: 048
  3. ADALAT [Concomitant]
     Route: 048
  4. CARDENALIN [Concomitant]
     Route: 048

REACTIONS (1)
  - MYOCARDIAL INFARCTION [None]
